FAERS Safety Report 8512452-6 (Version None)
Quarter: 2012Q3

REPORT INFORMATION
  Report Type: 
  Country: None (occurrence: None)
  Receive Date: 20120716
  Receipt Date: 20120710
  Transmission Date: 20120928
  Serious: Yes (Hospitalization)
  Sender: FDA-Public Use
  Company Number: US-ROCHE-1086805

PATIENT
  Sex: Female
  Weight: 92.616 kg

DRUGS (1)
  1. XELODA [Suspect]
     Indication: BREAST CANCER METASTATIC
     Route: 048
     Dates: start: 20120119, end: 20120702

REACTIONS (2)
  - METASTASES TO BONE [None]
  - PATHOLOGICAL FRACTURE [None]
